FAERS Safety Report 10242019 (Version 1)
Quarter: 2014Q2

REPORT INFORMATION
  Report Type: Spontaneous
  Country: US (occurrence: None)
  Receive Date: 20140613
  Receipt Date: 20140613
  Transmission Date: 20141212
  Serious: Yes (Hospitalization, Other)
  Sender: FDA-Public Use
  Company Number: SYM-2014-21859

PATIENT
  Age: 33 Month
  Sex: Female
  Weight: 13 kg

DRUGS (6)
  1. AMMONUL [Suspect]
     Indication: HYPERAMMONAEMIA
     Dosage: 3,480 MG, IN 90 MINUTES, IV
     Route: 042
     Dates: start: 20140128, end: 20140128
  2. RAVICTI [Suspect]
     Indication: AMINO ACID METABOLISM DISORDER
     Route: 048
     Dates: start: 201310
  3. ARGININE [Suspect]
     Indication: PRODUCT USED FOR UNKNOWN INDICATION
     Route: 040
  4. GLUCOSE [Suspect]
     Indication: PRODUCT USED FOR UNKNOWN INDICATION
     Route: 040
  5. CITRULLINE (CITRULLINE) [Concomitant]
  6. LEVOCARNITINE (LEVOCARITINE) [Concomitant]

REACTIONS (4)
  - Tachypnoea [None]
  - Tachycardia [None]
  - Metabolic acidosis [None]
  - Respiratory syncytial virus test positive [None]
